FAERS Safety Report 7129669-8 (Version None)
Quarter: 2010Q4

REPORT INFORMATION
  Report Type: 
  Country: None (occurrence: None)
  Receive Date: 20101130
  Receipt Date: 20101117
  Transmission Date: 20110411
  Serious: Yes (Hospitalization)
  Sender: FDA-Public Use
  Company Number: NL-MYLANLABS-2010S1021542

PATIENT
  Age: 43 Year
  Sex: Female

DRUGS (2)
  1. INDOMETHACIN SODIUM [Suspect]
     Indication: MUSCULOSKELETAL PAIN
     Route: 065
  2. SERTRALINE HYDROCHLORIDE [Interacting]
     Indication: DEPRESSION
     Route: 065

REACTIONS (3)
  - COMA [None]
  - MYOCARDIAL INFARCTION [None]
  - SEROTONIN SYNDROME [None]
